FAERS Safety Report 9878406 (Version 2)
Quarter: 2014Q1

REPORT INFORMATION
  Report Type: Spontaneous
  Country: US (occurrence: US)
  Receive Date: 20140206
  Receipt Date: 20140206
  Transmission Date: 20141002
  Serious: No
  Sender: FDA-Public Use
  Company Number: US-ALLERGAN-1310893US

PATIENT
  Sex: Female

DRUGS (2)
  1. BOTOX [Suspect]
     Indication: HYPERHIDROSIS
     Dosage: 100 UNITS, SINGLE
     Route: 030
     Dates: start: 20130612, end: 20130612
  2. BIRTH CONTROL [Concomitant]
     Indication: CONTRACEPTION
     Dosage: UNK

REACTIONS (3)
  - Incorrect route of drug administration [Unknown]
  - Wrong technique in drug usage process [Unknown]
  - Therapeutic response decreased [Unknown]
